FAERS Safety Report 5225839-4 (Version None)
Quarter: 2007Q1

REPORT INFORMATION
  Report Type: 
  Country: None (occurrence: None)
  Receive Date: 20070130
  Receipt Date: 20070130
  Transmission Date: 20070707
  Serious: No
  Sender: FDA-Public Use
  Company Number: None

PATIENT
  Sex: Female
  Weight: 92.0802 kg

DRUGS (2)
  1. ABRAXANE [Suspect]
     Indication: BREAST CANCER METASTATIC
     Dosage: 260MG/M2X4, 100/M2X3 80/M2X3 Q3 THEN Q2 WEEKS IV
     Route: 042
     Dates: start: 20060216, end: 20060803
  2. AVASTIN [Suspect]
     Dosage: 15MG/KGX4, 10MG/KGX6 Q 3 THEN Q 2 WEEKS IV
     Route: 042
     Dates: start: 20060216, end: 20060803

REACTIONS (3)
  - IMPAIRED WORK ABILITY [None]
  - NEUROPATHY [None]
  - PAIN [None]
